FAERS Safety Report 21029146 (Version 2)
Quarter: 2022Q3

REPORT INFORMATION
  Report Type: Spontaneous
  Country: CZ (occurrence: CZ)
  Receive Date: 20220630
  Receipt Date: 20220715
  Transmission Date: 20221026
  Serious: Yes (Hospitalization)
  Sender: FDA-Public Use
  Company Number: CZ-TEVA-2022-CZ-2049607

PATIENT
  Age: 39 Year
  Sex: Male

DRUGS (3)
  1. OLANZAPINE PAMOATE [Suspect]
     Active Substance: OLANZAPINE PAMOATE
     Indication: Schizophrenia
     Route: 065
  2. ARIPIPRAZOLE [Suspect]
     Active Substance: ARIPIPRAZOLE
     Indication: Schizophrenia
     Dosage: 15 MILLIGRAM DAILY;
     Route: 065
  3. CHLORPROTHIXENE HYDROCHLORIDE [Suspect]
     Active Substance: CHLORPROTHIXENE HYDROCHLORIDE
     Indication: Schizophrenia
     Route: 065

REACTIONS (5)
  - Akathisia [Recovered/Resolved]
  - Agitation [Recovered/Resolved]
  - Tension [Recovered/Resolved]
  - Insomnia [Recovered/Resolved]
  - Drug ineffective [Unknown]
